FAERS Safety Report 10289163 (Version 3)
Quarter: 2015Q1

REPORT INFORMATION
  Report Type: Spontaneous
  Country: US (occurrence: US)
  Receive Date: 20140710
  Receipt Date: 20150227
  Transmission Date: 20150720
  Serious: Yes (Hospitalization, Other)
  Sender: FDA-Public Use
  Company Number: US-AMGEN INC.-USASP2014051054

PATIENT
  Age: 26 Year
  Sex: Female
  Weight: 56.69 kg

DRUGS (23)
  1. SULFASALAZINE. [Concomitant]
     Active Substance: SULFASALAZINE
     Dosage: UNK
     Dates: start: 2007
  2. NORETHINDRONE                      /00044901/ [Concomitant]
     Active Substance: NORETHINDRONE
     Dosage: 0.35 MG, QD
     Route: 048
  3. CLARITIN [Concomitant]
     Active Substance: LORATADINE
     Dosage: 10 MG, QD
     Route: 048
  4. ORENCIA [Suspect]
     Active Substance: ABATACEPT
     Indication: RHEUMATOID ARTHRITIS
     Dosage: UNK
     Route: 065
     Dates: start: 2011, end: 201405
  5. XANAX [Concomitant]
     Active Substance: ALPRAZOLAM
     Dosage: 0.25 MG, BID
     Route: 048
  6. ALBUTEROL W/IPRATROPIUM [Concomitant]
     Active Substance: ALBUTEROL\IPRATROPIUM
     Indication: DYSPNOEA
     Dosage: 2.5 MG-0.5 MG, OUR TIMES A DAY, AS NEEDED
  7. LIDOCAINE. [Concomitant]
     Active Substance: LIDOCAINE
     Indication: ORAL PAIN
     Dosage: 5 ML, AS NECESSARY SWISH AND SWALLOW, EVERY SIX HOURS
     Route: 061
  8. COMPAZINE [Concomitant]
     Active Substance: PROCHLORPERAZINE MALEATE
     Indication: NAUSEA
     Dosage: 10 MG, EVERY SIX HOURS AS NECESSARY
     Route: 048
  9. BISOPROLOL [Concomitant]
     Active Substance: BISOPROLOL
     Indication: HEART RATE
     Dosage: 2.5 MG, QD
  10. BACTRIM DS [Concomitant]
     Active Substance: SULFAMETHOXAZOLE\TRIMETHOPRIM
     Dosage: 800MG-160MG
     Route: 048
  11. REMICADE [Suspect]
     Active Substance: INFLIXIMAB
     Indication: PRODUCT USED FOR UNKNOWN INDICATION
     Dosage: UNK
     Route: 065
     Dates: start: 2010
  12. SYNTHROID [Concomitant]
     Active Substance: LEVOTHYROXINE SODIUM
     Dosage: 100 MUG, QD
     Route: 048
  13. MS CONTIN [Concomitant]
     Active Substance: MORPHINE SULFATE
     Dosage: 30 MG, 1 IN 8 HR
     Route: 048
  14. DOCUSATE W/SENNA [Concomitant]
     Indication: BOWEL MOVEMENT IRREGULARITY
     Dosage: 50MG-8.6MG, TAKKE 4 AT BEDTIME AND ADJUST AS NEEDED
  15. PANTOPRAZOLE [Concomitant]
     Active Substance: PANTOPRAZOLE SODIUM
     Dosage: 40 MG, QD
     Route: 048
  16. LACTULOSE. [Concomitant]
     Active Substance: LACTULOSE
     Indication: CONSTIPATION
     Dosage: 10G/15ML, 20GM, 30ML, THRICE IN A DAY
     Route: 048
  17. EMLA [Concomitant]
     Active Substance: LIDOCAINE\PRILOCAINE
     Dosage: 2.5%-2.5%, ONE APPLICATION
     Route: 061
  18. ENBREL [Suspect]
     Active Substance: ETANERCEPT
     Indication: RHEUMATOID ARTHRITIS
     Dosage: UNK
     Route: 065
     Dates: start: 2009, end: 2010
  19. ADVAIR HFA [Concomitant]
     Active Substance: FLUTICASONE PROPIONATE\SALMETEROL XINAFOATE
     Dosage: 250MCG-50MCG (1 PUFF,1 IN 1 D)
  20. NEURONTIN [Concomitant]
     Active Substance: GABAPENTIN
     Dosage: 300 MG, QD
     Route: 048
  21. OXYCODONE [Concomitant]
     Active Substance: OXYCODONE
     Indication: PAIN
     Dosage: 1 TO 1.5 TABLETS EVERY FOUR HOURS
     Route: 048
  22. INFLIXIMAB [Concomitant]
     Active Substance: INFLIXIMAB
     Dosage: ONLY ONE DOSE
     Dates: start: 2010
  23. BISOPROLOL [Concomitant]
     Active Substance: BISOPROLOL
     Indication: BLOOD PRESSURE

REACTIONS (32)
  - White blood cell count increased [Unknown]
  - Fatigue [Unknown]
  - Normochromic normocytic anaemia [Unknown]
  - Chest discomfort [Unknown]
  - Mass [Unknown]
  - Neutrophilia [Recovering/Resolving]
  - Pulmonary mass [Unknown]
  - Dyspnoea [Unknown]
  - Paraneoplastic syndrome [Recovering/Resolving]
  - Pneumonia [Unknown]
  - Mediastinal mass [Unknown]
  - Blood urea decreased [Unknown]
  - Musculoskeletal pain [Unknown]
  - Pain [Unknown]
  - Blood albumin decreased [Unknown]
  - Hyperhidrosis [Unknown]
  - Therapeutic response decreased [Unknown]
  - Back pain [Unknown]
  - Pyrexia [Recovered/Resolved]
  - Dyspnoea exertional [Unknown]
  - Red cell distribution width increased [Unknown]
  - Platelet count increased [Unknown]
  - Paraesthesia [Recovered/Resolved]
  - Hypersensitivity [Unknown]
  - Hypertension [Unknown]
  - Sarcoma [Unknown]
  - Lymphadenopathy mediastinal [Unknown]
  - Impaired healing [Unknown]
  - Hypoaesthesia [Recovered/Resolved]
  - Haemoglobin decreased [Unknown]
  - Hypothyroidism [Unknown]
  - Liver disorder [Unknown]

NARRATIVE: CASE EVENT DATE: 2009
